APPROVED DRUG PRODUCT: ALBUTEROL SULFATE
Active Ingredient: ALBUTEROL SULFATE
Strength: EQ 0.083% BASE **Federal Register determination that product was not discontinued or withdrawn for safety or effectiveness reasons**
Dosage Form/Route: SOLUTION;INHALATION
Application: A072652 | Product #001
Applicant: PHARMOBEDIENT CONSULTING LLC
Approved: Feb 21, 1992 | RLD: No | RS: No | Type: DISCN